FAERS Safety Report 6564465-1 (Version None)
Quarter: 2010Q1

REPORT INFORMATION
  Report Type: 
  Country: None (occurrence: None)
  Receive Date: 20100201
  Receipt Date: 20100121
  Transmission Date: 20100710
  Serious: Yes (Other)
  Sender: FDA-Public Use
  Company Number: US-SANOFI-AVENTIS-2010SA004125

PATIENT
  Age: 84 Year
  Sex: Male

DRUGS (4)
  1. MULTAQ [Suspect]
     Indication: OFF LABEL USE
     Route: 048
     Dates: start: 20100115, end: 20100116
  2. AMIODARONE HCL [Concomitant]
     Dates: end: 20100101
  3. SIMVASTATIN [Concomitant]
  4. ALL OTHER THERAPEUTIC PRODUCTS [Concomitant]

REACTIONS (2)
  - OFF LABEL USE [None]
  - PLATELET COUNT DECREASED [None]
